FAERS Safety Report 5795045-3 (Version None)
Quarter: 2008Q2

REPORT INFORMATION
  Report Type: 
  Country: None (occurrence: None)
  Receive Date: 20080630
  Receipt Date: 20080311
  Transmission Date: 20081010
  Serious: No
  Sender: FDA-Public Use
  Company Number: US-BRISTOL-MYERS SQUIBB COMPANY-14111496

PATIENT
  Age: 50 Year
  Sex: Female
  Weight: 75 kg

DRUGS (6)
  1. ORENCIA [Suspect]
     Indication: RHEUMATOID ARTHRITIS
     Dates: start: 20071101
  2. MEDROL [Concomitant]
  3. METHOTREXATE [Concomitant]
  4. LEXAPRO [Concomitant]
  5. CALTRATE + D [Concomitant]
  6. ACTONEL [Concomitant]

REACTIONS (2)
  - DRUG INEFFECTIVE [None]
  - RED BLOOD CELL SEDIMENTATION RATE INCREASED [None]
